FAERS Safety Report 12376231 (Version 1)
Quarter: 2016Q2

REPORT INFORMATION
  Report Type: Spontaneous
  Country: US (occurrence: US)
  Receive Date: 20160517
  Receipt Date: 20160517
  Transmission Date: 20160815
  Serious: Yes (Other)
  Sender: FDA-Public Use
  Company Number: US-MDT-ADR-2016-00881

PATIENT
  Age: 52 Year
  Sex: Male

DRUGS (2)
  1. BACLOFEN. [Suspect]
     Active Substance: BACLOFEN
     Route: 037
  2. MORPHINE [Suspect]
     Active Substance: MORPHINE
     Route: 037

REACTIONS (2)
  - Medical device site swelling [Not Recovered/Not Resolved]
  - Implant site extravasation [Not Recovered/Not Resolved]

NARRATIVE: CASE EVENT DATE: 20160503
